FAERS Safety Report 8856050 (Version 1)
Quarter: 2012Q4

REPORT INFORMATION
  Report Type: Spontaneous
  Country: US (occurrence: None)
  Receive Date: 20121022
  Receipt Date: 20121022
  Transmission Date: 20130627
  Serious: Yes (Other)
  Sender: FDA-Public Use
  Company Number: None

PATIENT
  Age: 41 Year
  Sex: Female
  Weight: 70.31 kg

DRUGS (1)
  1. BOTOX [Suspect]
     Dosage: 200 UNITS EVERY 3 MONTHS IM
     Route: 030
     Dates: start: 20110101, end: 20120901

REACTIONS (7)
  - Malaise [None]
  - Musculoskeletal stiffness [None]
  - Visual acuity reduced [None]
  - Respiratory disorder [None]
  - Injection site reaction [None]
  - Depression [None]
  - Fatigue [None]
